FAERS Safety Report 23808132 (Version 2)
Quarter: 2024Q2

REPORT INFORMATION
  Report Type: Spontaneous
  Country: FR (occurrence: FR)
  Receive Date: 20240502
  Receipt Date: 20240530
  Transmission Date: 20240715
  Serious: Yes (Death)
  Sender: FDA-Public Use
  Company Number: None

PATIENT
  Age: 69 Year
  Sex: Female
  Weight: 51 kg

DRUGS (2)
  1. SOLU-MEDROL [Suspect]
     Active Substance: METHYLPREDNISOLONE SODIUM SUCCINATE
     Indication: Chemotherapy side effect prophylaxis
     Dosage: 120 MG
     Route: 042
     Dates: start: 20240311, end: 20240311
  2. NIVOLUMAB [Concomitant]
     Active Substance: NIVOLUMAB
     Indication: Gastric cancer recurrent
     Dosage: UNK
     Route: 042
     Dates: start: 20240311, end: 20240311

REACTIONS (3)
  - Cardio-respiratory arrest [Fatal]
  - Malaise [Fatal]
  - Off label use [Unknown]

NARRATIVE: CASE EVENT DATE: 20240311
